FAERS Safety Report 15489447 (Version 1)
Quarter: 2018Q4

REPORT INFORMATION
  Report Type: Spontaneous
  Country: JP (occurrence: JP)
  Receive Date: 20181011
  Receipt Date: 20181011
  Transmission Date: 20190205
  Serious: Yes (Death)
  Sender: FDA-Public Use
  Company Number: JP-BAYER-2018-134677

PATIENT
  Age: 74 Year
  Sex: Male
  Weight: 44 kg

DRUGS (9)
  1. BAYASPIRIN 100 MG [Suspect]
     Active Substance: ASPIRIN
     Indication: ATRIAL FIBRILLATION
     Dosage: DAILY DOSE 1 DF
     Route: 048
     Dates: start: 20151208, end: 20160512
  2. DIART [Concomitant]
     Active Substance: AZOSEMIDE
     Indication: CARDIAC FAILURE
     Dosage: DAILY DOSE 1 DF
     Route: 048
     Dates: start: 20151208, end: 20160610
  3. ALDACTONE A [Concomitant]
     Active Substance: SPIRONOLACTONE
  4. SPIRONOLACTONE. [Concomitant]
     Active Substance: SPIRONOLACTONE
     Indication: CARDIAC FAILURE
     Dosage: DAILY DOSE 2 DF
     Route: 048
     Dates: start: 20151208, end: 20160610
  5. BAYASPIRIN 100 MG [Interacting]
     Active Substance: ASPIRIN
     Indication: CARDIAC FAILURE
  6. WARFARIN [Interacting]
     Active Substance: WARFARIN
     Indication: ATRIAL FIBRILLATION
     Dosage: DAILY DOSE 1.5 MG
     Route: 048
     Dates: start: 20120620, end: 20160610
  7. AZOSEMIDE [Concomitant]
     Active Substance: AZOSEMIDE
  8. DILTIAZEM. [Concomitant]
     Active Substance: DILTIAZEM
  9. PREDNISOLONE. [Concomitant]
     Active Substance: PREDNISOLONE
     Indication: RESPIRATORY FAILURE
     Dosage: DAILY DOSE 1 DF
     Route: 048
     Dates: start: 20160426, end: 20160610

REACTIONS (7)
  - Skin reaction [Recovered/Resolved]
  - Labelled drug-drug interaction medication error [None]
  - Purpura [Recovered/Resolved]
  - Acarodermatitis [Recovered/Resolved]
  - Skin exfoliation [Recovered/Resolved]
  - Acute respiratory distress syndrome [Fatal]
  - Skin haemorrhage [Recovered/Resolved]

NARRATIVE: CASE EVENT DATE: 20160426
